FAERS Safety Report 24443838 (Version 2)
Quarter: 2024Q4

REPORT INFORMATION
  Report Type: Report from Study
  Country: US (occurrence: US)
  Receive Date: 20241016
  Receipt Date: 20241017
  Transmission Date: 20250115
  Serious: No
  Sender: ROCHE
  Company Number: US-ROCHE-1974799

PATIENT
  Age: 59 Year
  Sex: Male
  Weight: 86.64 kg

DRUGS (20)
  1. RITUXAN [Suspect]
     Active Substance: RITUXIMAB
     Indication: Multiple sclerosis relapse
     Route: 065
  2. TYLENOL [Concomitant]
     Active Substance: ACETAMINOPHEN
  3. VITAMIN C [Concomitant]
     Active Substance: ASCORBIC ACID
  4. OPTIVAR [Concomitant]
     Active Substance: AZELASTINE HYDROCHLORIDE
  5. TESSALON [Concomitant]
     Active Substance: BENZONATATE
  6. CHOLECALCIFEROL [Concomitant]
     Active Substance: CHOLECALCIFEROL
  7. AMPYRA [Concomitant]
     Active Substance: DALFAMPRIDINE
  8. TECFIDERA [Concomitant]
     Active Substance: DIMETHYL FUMARATE
  9. COLACE [Concomitant]
     Active Substance: DOCUSATE SODIUM
  10. LASIX [Concomitant]
     Active Substance: FUROSEMIDE
  11. XALATAN [Concomitant]
     Active Substance: LATANOPROST
  12. PRINIVIL [Concomitant]
     Active Substance: LISINOPRIL
  13. ZESTRIL [Concomitant]
     Active Substance: LISINOPRIL
  14. MOBIC [Concomitant]
     Active Substance: MELOXICAM
  15. MYCOSTATIN [Concomitant]
     Active Substance: NYSTATIN
  16. TIMOPTIC [Concomitant]
     Active Substance: TIMOLOL MALEATE
  17. SYMMETREL [Concomitant]
     Active Substance: AMANTADINE HYDROCHLORIDE
  18. LIORESAL [Concomitant]
     Active Substance: BACLOFEN
  19. KEPPRA [Concomitant]
     Active Substance: LEVETIRACETAM
  20. EFFEXOR XR [Concomitant]
     Active Substance: VENLAFAXINE HYDROCHLORIDE

REACTIONS (2)
  - Off label use [Unknown]
  - No adverse event [Unknown]
